FAERS Safety Report 6153692-3 (Version None)
Quarter: 2009Q2

REPORT INFORMATION
  Report Type: 
  Country: None (occurrence: None)
  Receive Date: 20090409
  Receipt Date: 20090406
  Transmission Date: 20091009
  Serious: Yes (Hospitalization)
  Sender: FDA-Public Use
  Company Number: 1000004938

PATIENT
  Age: 37 Year
  Sex: Male

DRUGS (5)
  1. CARBAMAZEPINE [Suspect]
     Indication: BIPOLAR DISORDER
     Dosage: 1000 MILLIGRAM
     Dates: start: 20070701, end: 20071001
  2. LITHIUM CARBONATE [Concomitant]
  3. CLONAZEPAM [Concomitant]
  4. OLANZAPINE [Concomitant]
  5. VALPROIC ACID [Concomitant]

REACTIONS (1)
  - APLASIA PURE RED CELL [None]
